FAERS Safety Report 5788019-X (Version None)
Quarter: 2008Q2

REPORT INFORMATION
  Report Type: 
  Country: None (occurrence: None)
  Receive Date: 20080625
  Receipt Date: 20080616
  Transmission Date: 20081010
  Serious: Yes (Other)
  Sender: FDA-Public Use
  Company Number: US-ELI_LILLY_AND_COMPANY-US200806003472

PATIENT
  Sex: Female

DRUGS (4)
  1. EVISTA [Suspect]
     Indication: OSTEOPENIA
     Dosage: 60 MG, DAILY (1/D)
     Dates: start: 19980601
  2. EVISTA [Suspect]
     Dosage: 60 MG, DAILY (1/D)
     Dates: start: 20080526
  3. PREMARIN [Concomitant]
  4. FOSAMAX [Concomitant]

REACTIONS (4)
  - DIVERTICULITIS [None]
  - HIP ARTHROPLASTY [None]
  - SPINAL OPERATION [None]
  - STENT PLACEMENT [None]
